FAERS Safety Report 5103209-7 (Version None)
Quarter: 2006Q3

REPORT INFORMATION
  Report Type: 
  Country: None (occurrence: None)
  Receive Date: 20060912
  Receipt Date: 20060912
  Transmission Date: 20061208
  Serious: Yes (Other)
  Sender: FDA-Public Use
  Company Number: None

PATIENT
  Age: 39 Year
  Sex: Female

DRUGS (1)
  1. HALOPERIDOL [Suspect]
     Indication: PSYCHOTIC DISORDER
     Dosage: 5 MG Q 6 H PO PRN
     Route: 048
     Dates: start: 20060828, end: 20060830

REACTIONS (3)
  - DYSKINESIA [None]
  - DYSTONIA [None]
  - FEELING ABNORMAL [None]
